FAERS Safety Report 14243830 (Version 1)
Quarter: 2017Q4

REPORT INFORMATION
  Report Type: Spontaneous
  Country: US (occurrence: US)
  Receive Date: 20171201
  Receipt Date: 20171201
  Transmission Date: 20180321
  Serious: Yes (Other)
  Sender: FDA-Public Use
  Company Number: None

PATIENT
  Age: 67 Year
  Sex: Female
  Weight: 85.5 kg

DRUGS (9)
  1. NOW VALSARTIN [Concomitant]
  2. MULTI-VITAMIN [Concomitant]
     Active Substance: .ALPHA.-TOCOPHEROL ACETATE, DL-\ASCORBIC ACID\CYANOCOBALAMIN\FLUORIDE ION\FOLIC ACID\NIACIN\PYRIDOXINE\RIBOFLAVIN\THIAMINE\VITAMIN A\VITAMIN D
  3. SIMVASTATIN. [Concomitant]
     Active Substance: SIMVASTATIN
  4. BYSTOLIC [Suspect]
     Active Substance: NEBIVOLOL HYDROCHLORIDE
     Indication: HYPERTENSION
     Dosage: ?          QUANTITY:1 TABLET(S);?
     Route: 048
  5. CALCIUM [Concomitant]
     Active Substance: CALCIUM
  6. COQ10 [Concomitant]
     Active Substance: UBIDECARENONE
  7. TRIAMPTERINE HZT [Concomitant]
  8. KRILL OIL [Concomitant]
     Active Substance: DIETARY SUPPLEMENT
  9. VISION FORMULA II [Concomitant]

REACTIONS (3)
  - Blood pressure increased [None]
  - Product quality issue [None]
  - Hypoaesthesia [None]

NARRATIVE: CASE EVENT DATE: 20171123
